FAERS Safety Report 5380444-4 (Version None)
Quarter: 2007Q3

REPORT INFORMATION
  Report Type: 
  Country: None (occurrence: None)
  Receive Date: 20070706
  Receipt Date: 20070530
  Transmission Date: 20080115
  Serious: No
  Sender: FDA-Public Use
  Company Number: A0653519A

PATIENT
  Age: 71 Year
  Sex: Female

DRUGS (6)
  1. TYKERB [Suspect]
     Indication: BREAST CANCER
     Dosage: 1250MG PER DAY
     Route: 048
     Dates: start: 20070401
  2. LASIX [Concomitant]
  3. ASPIRIN [Concomitant]
  4. POTASSIUM ACETATE [Concomitant]
  5. ANTIBIOTIC [Concomitant]
  6. XELODA [Concomitant]

REACTIONS (4)
  - DIARRHOEA [None]
  - NAIL INFECTION [None]
  - PRURITUS [None]
  - RASH [None]
